FAERS Safety Report 5636376-7 (Version None)
Quarter: 2008Q1

REPORT INFORMATION
  Report Type: 
  Country: None (occurrence: None)
  Receive Date: 20080225
  Receipt Date: 20071107
  Transmission Date: 20080703
  Serious: No
  Sender: FDA-Public Use
  Company Number: A0692285A

PATIENT
  Age: 59 Year
  Sex: Male

DRUGS (3)
  1. VERAMYST [Suspect]
     Dosage: 27.5MCG PER DAY
     Route: 045
     Dates: start: 20071106
  2. CLARITIN-D [Concomitant]
  3. NYQUIL [Concomitant]

REACTIONS (1)
  - EPISTAXIS [None]
